FAERS Safety Report 6273319-X (Version None)
Quarter: 2009Q3

REPORT INFORMATION
  Report Type: 
  Country: None (occurrence: None)
  Receive Date: 20090715
  Receipt Date: 20090703
  Transmission Date: 20100115
  Serious: Yes (Death)
  Sender: FDA-Public Use
  Company Number: 1-18145570

PATIENT
  Sex: Male
  Weight: 2.5 kg

DRUGS (1)
  1. AMMONUL [Suspect]

REACTIONS (6)
  - CARDIOVASCULAR INSUFFICIENCY [None]
  - HYPERAMMONAEMIA [None]
  - INFECTION [None]
  - MULTI-ORGAN DISORDER [None]
  - PERITONEAL DIALYSIS [None]
  - RESPIRATORY FAILURE [None]
